FAERS Safety Report 6571483-6 (Version None)
Quarter: 2010Q1

REPORT INFORMATION
  Report Type: 
  Country: None (occurrence: None)
  Receive Date: 20100205
  Receipt Date: 20100125
  Transmission Date: 20100710
  Serious: Yes (Hospitalization, Other)
  Sender: FDA-Public Use
  Company Number: US-JNJFOC-20091007777

PATIENT
  Sex: Female

DRUGS (8)
  1. REMICADE [Suspect]
     Indication: PSORIATIC ARTHROPATHY
     Route: 042
  2. REMICADE [Suspect]
     Dosage: ^LATE 2008^
     Route: 042
  3. REMICADE [Suspect]
     Route: 042
  4. REMICADE [Suspect]
     Route: 042
  5. REMICADE [Suspect]
     Route: 042
  6. PREDNISONE [Concomitant]
     Dosage: 5 PILLS DAILY
  7. AMBIEN [Concomitant]
  8. MORPHINE [Concomitant]

REACTIONS (8)
  - HEADACHE [None]
  - HIP ARTHROPLASTY [None]
  - HYPOAESTHESIA [None]
  - INSOMNIA [None]
  - MALAISE [None]
  - PAIN [None]
  - TOOTH INFECTION [None]
  - WHITE BLOOD CELL COUNT INCREASED [None]
